FAERS Safety Report 16037345 (Version 2)
Quarter: 2019Q1

REPORT INFORMATION
  Report Type: Report from Study
  Country: US (occurrence: US)
  Receive Date: 20190305
  Receipt Date: 20190325
  Transmission Date: 20190418
  Serious: Yes (Hospitalization, Other)
  Sender: FDA-Public Use
  Company Number: US-JNJFOC-20190121629

PATIENT
  Sex: Female

DRUGS (4)
  1. IMBRUVICA [Suspect]
     Active Substance: IBRUTINIB
     Indication: SKIN CANCER
     Route: 048
     Dates: start: 20190305
  2. IMBRUVICA [Suspect]
     Active Substance: IBRUTINIB
     Indication: SKIN CANCER
     Route: 048
     Dates: start: 20180819
  3. IMBRUVICA [Suspect]
     Active Substance: IBRUTINIB
     Indication: SKIN CANCER
     Route: 048
     Dates: start: 20180919
  4. IMBRUVICA [Suspect]
     Active Substance: IBRUTINIB
     Indication: SKIN CANCER
     Route: 048
     Dates: start: 20190118, end: 201902

REACTIONS (2)
  - Disease progression [Unknown]
  - Medullary thyroid cancer [Unknown]
